FAERS Safety Report 9290746 (Version 1)
Quarter: 2013Q2

REPORT INFORMATION
  Report Type: Report from Study
  Country: FR (occurrence: FR)
  Receive Date: 20130515
  Receipt Date: 20130515
  Transmission Date: 20140414
  Serious: Yes (Hospitalization)
  Sender: FDA-Public Use
  Company Number: PHHY2013FR047167

PATIENT
  Age: 9 Year
  Sex: Male

DRUGS (4)
  1. SOMATROPIN [Suspect]
     Indication: SMALL FOR DATES BABY
     Dates: start: 20080404, end: 20110117
  2. NUREFLEX [Concomitant]
  3. DOLIPRANE [Concomitant]
  4. ADVIL [Concomitant]

REACTIONS (6)
  - Headache [Recovered/Resolved]
  - Tinnitus [Recovered/Resolved]
  - Vision blurred [Recovered/Resolved]
  - Nausea [Recovered/Resolved]
  - Pallor [Recovered/Resolved]
  - Agitation [Recovered/Resolved]
